FAERS Safety Report 12254830 (Version 1)
Quarter: 2016Q2

REPORT INFORMATION
  Report Type: Spontaneous
  Country: US (occurrence: US)
  Receive Date: 20160411
  Receipt Date: 20160411
  Transmission Date: 20160815
  Serious: Yes (Other)
  Sender: FDA-Public Use
  Company Number: US-WATSON-2016-07260

PATIENT
  Age: 63 Year
  Sex: Female

DRUGS (1)
  1. HEPARIN [Suspect]
     Active Substance: HEPARIN SODIUM
     Indication: ANTICOAGULANT THERAPY
     Dosage: UNK
     Route: 051

REACTIONS (3)
  - Peripheral ischaemia [Recovered/Resolved]
  - Heparin-induced thrombocytopenia [Recovered/Resolved]
  - Thrombosis in device [Recovered/Resolved]
